FAERS Safety Report 7778474 (Version 4)
Quarter: 2012Q4

REPORT INFORMATION
  Report Type: 
  Country: US (occurrence: US)
  Receive Date: 20110128
  Receipt Date: 20121210
  Transmission Date: 20130627
  Serious: Yes (Hospitalization, Other)
  Sender: FDA-Public Use
  Company Number: US-ACTELION-A-NJ2011-43995

PATIENT
  Age: 77 Year
  Sex: Male

DRUGS (3)
  1. TRACLEER [Suspect]
     Indication: PULMONARY ARTERIAL HYPERTENSION
     Dosage: UNK
     Route: 048
  2. PLAVIX [Concomitant]
  3. ASPIRIN [Concomitant]

REACTIONS (13)
  - Catheterisation cardiac [Unknown]
  - Stent placement [Unknown]
  - Unresponsive to stimuli [Unknown]
  - Rectal neoplasm [Unknown]
  - Rectal polyp [Unknown]
  - Cardiac enzymes increased [Unknown]
  - Syncope [Unknown]
  - Oxygen saturation decreased [Unknown]
  - Carbon dioxide increased [Recovering/Resolving]
  - Dyspnoea [Recovering/Resolving]
  - Fatigue [Recovering/Resolving]
  - Fluid retention [Recovering/Resolving]
  - Off label use [None]
